FAERS Safety Report 25370361 (Version 1)
Quarter: 2025Q2

REPORT INFORMATION
  Report Type: Spontaneous
  Country: FR (occurrence: FR)
  Receive Date: 20250528
  Receipt Date: 20250528
  Transmission Date: 20250716
  Serious: Yes (Hospitalization)
  Sender: MYLAN
  Company Number: FR-ROCHE-10000279841

PATIENT
  Age: 52 Year
  Sex: Male

DRUGS (24)
  1. OXALIPLATIN [Suspect]
     Active Substance: OXALIPLATIN
     Indication: Colorectal cancer metastatic
     Dates: start: 20241227
  2. OXALIPLATIN [Suspect]
     Active Substance: OXALIPLATIN
     Dates: start: 20241227
  3. OXALIPLATIN [Suspect]
     Active Substance: OXALIPLATIN
     Route: 042
     Dates: start: 20241227
  4. OXALIPLATIN [Suspect]
     Active Substance: OXALIPLATIN
     Route: 042
     Dates: start: 20241227
  5. OXALIPLATIN [Suspect]
     Active Substance: OXALIPLATIN
     Dates: start: 20250207
  6. OXALIPLATIN [Suspect]
     Active Substance: OXALIPLATIN
     Dates: start: 20250207
  7. OXALIPLATIN [Suspect]
     Active Substance: OXALIPLATIN
     Route: 042
     Dates: start: 20250207
  8. OXALIPLATIN [Suspect]
     Active Substance: OXALIPLATIN
     Route: 042
     Dates: start: 20250207
  9. CAPECITABINE [Suspect]
     Active Substance: CAPECITABINE
     Indication: Colorectal cancer metastatic
     Dosage: 1750 MILLIGRAM, QD
     Dates: start: 20241227
  10. CAPECITABINE [Suspect]
     Active Substance: CAPECITABINE
     Dosage: 1750 MILLIGRAM, QD
     Dates: start: 20241227
  11. CAPECITABINE [Suspect]
     Active Substance: CAPECITABINE
     Dosage: 1750 MILLIGRAM, QD
     Route: 065
     Dates: start: 20241227
  12. CAPECITABINE [Suspect]
     Active Substance: CAPECITABINE
     Dosage: 1750 MILLIGRAM, QD
     Route: 065
     Dates: start: 20241227
  13. CAPECITABINE [Suspect]
     Active Substance: CAPECITABINE
     Dosage: 1750 MILLIGRAM, QD,THIRD CYCLE OF TREATMENT
     Dates: start: 20250207
  14. CAPECITABINE [Suspect]
     Active Substance: CAPECITABINE
     Dosage: 1750 MILLIGRAM, QD,THIRD CYCLE OF TREATMENT
     Dates: start: 20250207
  15. CAPECITABINE [Suspect]
     Active Substance: CAPECITABINE
     Dosage: 1750 MILLIGRAM, QD,THIRD CYCLE OF TREATMENT
     Route: 065
     Dates: start: 20250207
  16. CAPECITABINE [Suspect]
     Active Substance: CAPECITABINE
     Dosage: 1750 MILLIGRAM, QD,THIRD CYCLE OF TREATMENT
     Route: 065
     Dates: start: 20250207
  17. ATEZOLIZUMAB [Suspect]
     Active Substance: ATEZOLIZUMAB
     Indication: Colorectal cancer metastatic
     Dates: start: 20241227, end: 20250207
  18. ATEZOLIZUMAB [Suspect]
     Active Substance: ATEZOLIZUMAB
     Route: 065
     Dates: start: 20241227, end: 20250207
  19. ATEZOLIZUMAB [Suspect]
     Active Substance: ATEZOLIZUMAB
     Route: 065
     Dates: start: 20241227, end: 20250207
  20. ATEZOLIZUMAB [Suspect]
     Active Substance: ATEZOLIZUMAB
     Dates: start: 20241227, end: 20250207
  21. DEVICE\YTTRIUM Y-90 [Suspect]
     Active Substance: DEVICE\YTTRIUM Y-90
     Indication: Colorectal cancer metastatic
     Dates: start: 20250211, end: 20250211
  22. DEVICE\YTTRIUM Y-90 [Suspect]
     Active Substance: DEVICE\YTTRIUM Y-90
     Route: 065
     Dates: start: 20250211, end: 20250211
  23. DEVICE\YTTRIUM Y-90 [Suspect]
     Active Substance: DEVICE\YTTRIUM Y-90
     Route: 065
     Dates: start: 20250211, end: 20250211
  24. DEVICE\YTTRIUM Y-90 [Suspect]
     Active Substance: DEVICE\YTTRIUM Y-90
     Dates: start: 20250211, end: 20250211

REACTIONS (1)
  - Intestinal ischaemia [Recovering/Resolving]

NARRATIVE: CASE EVENT DATE: 20250213
